FAERS Safety Report 9209195 (Version 2)
Quarter: 2013Q2

REPORT INFORMATION
  Report Type: Report from Study
  Country: AU (occurrence: AU)
  Receive Date: 20130404
  Receipt Date: 20130517
  Transmission Date: 20140414
  Serious: Yes (Death, Hospitalization, Other)
  Sender: FDA-Public Use
  Company Number: PHHY2013AU032413

PATIENT
  Sex: Male

DRUGS (6)
  1. CLOZARIL [Suspect]
     Indication: SCHIZOPHRENIA
     Dosage: 225 MG, QHS
     Route: 048
     Dates: start: 19960109
  2. METFORMIN [Concomitant]
     Dosage: 500 MG, QD
     Route: 048
  3. COLOXYL [Concomitant]
     Dosage: UNK
  4. SENNA [Concomitant]
     Dosage: 2 DF, QHS
  5. AMITRIPTYLINE [Concomitant]
     Dosage: 10 MG, QHS
  6. MULTIVITAMIN//VITAMINS NOS [Concomitant]
     Dosage: UKN, QD

REACTIONS (14)
  - Respiratory failure [Fatal]
  - Abdominal distension [Unknown]
  - Obstructive airways disorder [Unknown]
  - Endotracheal intubation complication [Unknown]
  - Procedural complication [Unknown]
  - Postoperative fever [Unknown]
  - Intestinal perforation [Unknown]
  - Small intestinal obstruction [Unknown]
  - Ileus [Unknown]
  - Urinary tract infection [Unknown]
  - Lower respiratory tract infection [Unknown]
  - Adhesion [Unknown]
  - General physical health deterioration [Unknown]
  - Pain [Unknown]
